FAERS Safety Report 5090208-7 (Version None)
Quarter: 2006Q3

REPORT INFORMATION
  Report Type: 
  Country: None (occurrence: None)
  Receive Date: 20060828
  Receipt Date: 20060821
  Transmission Date: 20061208
  Serious: Yes (Hospitalization)
  Sender: FDA-Public Use
  Company Number: FR-GLAXOSMITHKLINE-B0435684A

PATIENT
  Age: 28 Year
  Sex: Male

DRUGS (1)
  1. AUGMENTIN [Suspect]
     Dosage: 500MG SINGLE DOSE
     Route: 048
     Dates: start: 20060126, end: 20060126

REACTIONS (9)
  - AGITATION [None]
  - ANAPHYLACTIC REACTION [None]
  - DRUG HYPERSENSITIVITY [None]
  - ERYTHEMA [None]
  - FEELING HOT [None]
  - OEDEMA PERIPHERAL [None]
  - PARAESTHESIA [None]
  - PHARYNGOLARYNGEAL DISCOMFORT [None]
  - PRURITUS [None]
